FAERS Safety Report 6852005-9 (Version None)
Quarter: 2010Q3

REPORT INFORMATION
  Report Type: 
  Country: None (occurrence: None)
  Receive Date: 20100717
  Receipt Date: 20071105
  Transmission Date: 20110219
  Serious: No
  Sender: FDA-Public Use
  Company Number: US-PFIZER INC-2007094431

PATIENT
  Sex: Male
  Weight: 56.2 kg

DRUGS (8)
  1. CHANTIX [Suspect]
     Indication: SMOKING CESSATION THERAPY
     Route: 048
     Dates: start: 20071025
  2. LISINOPRIL [Concomitant]
     Indication: HYPERTENSION
  3. TERIPARATIDE [Concomitant]
     Indication: OSTEOPOROSIS
  4. NAPROXEN [Concomitant]
     Indication: ANTIINFLAMMATORY THERAPY
  5. XANAX [Concomitant]
  6. COMBIVENT [Concomitant]
     Indication: CHRONIC OBSTRUCTIVE PULMONARY DISEASE
  7. MOMETASONE FUROATE [Concomitant]
     Indication: CHRONIC OBSTRUCTIVE PULMONARY DISEASE
  8. FELODIPINE [Concomitant]

REACTIONS (3)
  - ABNORMAL DREAMS [None]
  - NIGHTMARE [None]
  - SLEEP DISORDER [None]
